FAERS Safety Report 18912679 (Version 1)
Quarter: 2021Q1

REPORT INFORMATION
  Report Type: Spontaneous
  Country: DE (occurrence: DE)
  Receive Date: 20210219
  Receipt Date: 20210219
  Transmission Date: 20210420
  Serious: Yes (Life-Threatening, Other)
  Sender: FDA-Public Use
  Company Number: DE-SA-2021SA056134

PATIENT
  Age: 50 Year
  Sex: Male

DRUGS (1)
  1. DUPILUMAB [Suspect]
     Active Substance: DUPILUMAB
     Dates: start: 20120815

REACTIONS (2)
  - Chest injury [Unknown]
  - Road traffic accident [Unknown]

NARRATIVE: CASE EVENT DATE: 20210114
